FAERS Safety Report 5041396-X (Version None)
Quarter: 2006Q3

REPORT INFORMATION
  Report Type: 
  Country: None (occurrence: None)
  Receive Date: 20060703
  Receipt Date: 20060628
  Transmission Date: 20061208
  Serious: Yes (Life-Threatening)
  Sender: FDA-Public Use
  Company Number: FR-BRISTOL-MYERS SQUIBB COMPANY-13428636

PATIENT
  Age: 68 Year
  Sex: Male

DRUGS (2)
  1. METFORMIN HYDROCHLORIDE [Suspect]
     Route: 048
     Dates: start: 20000101
  2. APROVEL TABS 300 MG [Suspect]
     Route: 048
     Dates: start: 20050125

REACTIONS (3)
  - HYPERKALAEMIA [None]
  - LACTIC ACIDOSIS [None]
  - RENAL FAILURE ACUTE [None]
